FAERS Safety Report 5423715-5 (Version None)
Quarter: 2007Q3

REPORT INFORMATION
  Report Type: 
  Country: None (occurrence: None)
  Receive Date: 20070727
  Receipt Date: 20060131
  Transmission Date: 20080115
  Serious: Yes (Hospitalization)
  Sender: FDA-Public Use
  Company Number: THYM-10869

PATIENT
  Age: 21 Year
  Sex: Male

DRUGS (7)
  1. THYMOGLOBULIN [Suspect]
     Indication: KIDNEY TRANSPLANT REJECTION
     Dosage: 9 MG/KG IV
     Route: 042
     Dates: start: 20060101, end: 20060108
  2. THYMOGLOBULIN [Suspect]
     Indication: KIDNEY TRANSPLANT REJECTION
     Dates: start: 20060131
  3. PREDNISONE TAB [Concomitant]
  4. CELLCEPT [Concomitant]
  5. TACROLIMUS [Concomitant]
  6. VALGANCICLOVIR HCL [Concomitant]
  7. IMMUNE GLOBULIN INTRAVENOUS (HUMAN) [Concomitant]

REACTIONS (1)
  - KIDNEY TRANSPLANT REJECTION [None]
